FAERS Safety Report 21347389 (Version 1)
Quarter: 2022Q3

REPORT INFORMATION
  Report Type: Report from Study
  Country: CA (occurrence: CA)
  Receive Date: 20220919
  Receipt Date: 20220919
  Transmission Date: 20221027
  Serious: Yes (Other)
  Sender: FDA-Public Use
  Company Number: CA-CELLTRION INC.-2022CA010960

PATIENT

DRUGS (1)
  1. TRUXIMA [Suspect]
     Active Substance: RITUXIMAB-ABBS
     Indication: Hodgkin^s disease
     Dosage: 830MG, Q3WEEKS, M: 1 DOSE R: 1 DOSE

REACTIONS (2)
  - Hodgkin^s disease [Unknown]
  - Off label use [Unknown]
